FAERS Safety Report 7794208-5 (Version None)
Quarter: 2011Q3

REPORT INFORMATION
  Report Type: 
  Country: None (occurrence: None)
  Receive Date: 20110929
  Receipt Date: 20110916
  Transmission Date: 20111222
  Serious: Yes (Hospitalization, Other)
  Sender: FDA-Public Use
  Company Number: 2011PV000052

PATIENT
  Sex: Male

DRUGS (1)
  1. DEPOCYT [Suspect]
     Indication: PROPHYLAXIS
     Dosage: ;INTH
     Route: 055

REACTIONS (4)
  - PAPILLOEDEMA [None]
  - CONVULSION [None]
  - INTRACRANIAL PRESSURE INCREASED [None]
  - ARACHNOIDITIS [None]
